FAERS Safety Report 16257091 (Version 2)
Quarter: 2019Q2

REPORT INFORMATION
  Report Type: Spontaneous
  Country: US (occurrence: US)
  Receive Date: 20190430
  Receipt Date: 20190508
  Transmission Date: 20190711
  Serious: Yes (Other)
  Sender: FDA-Public Use
  Company Number: US-BAUSCH-BL-2019-012286

PATIENT
  Age: 60 Year
  Sex: Female
  Weight: 136.2 kg

DRUGS (2)
  1. JUBLIA [Suspect]
     Active Substance: EFINACONAZOLE
     Indication: PRODUCT USE IN UNAPPROVED INDICATION
  2. JUBLIA [Suspect]
     Active Substance: EFINACONAZOLE
     Indication: ECZEMA
     Route: 061
     Dates: start: 20190419, end: 20190422

REACTIONS (4)
  - Urticaria [Recovered/Resolved]
  - Rash erythematous [Recovered/Resolved]
  - Pruritus [Recovered/Resolved]
  - Product use in unapproved indication [Unknown]

NARRATIVE: CASE EVENT DATE: 20190419
